FAERS Safety Report 8305782-4 (Version None)
Quarter: 2012Q2

REPORT INFORMATION
  Report Type: 
  Country: None (occurrence: None)
  Receive Date: 20120423
  Receipt Date: 20120417
  Transmission Date: 20120825
  Serious: No
  Sender: FDA-Public Use
  Company Number: US-PFIZER INC-2012061186

PATIENT
  Sex: Female
  Weight: 77 kg

DRUGS (4)
  1. TORADOL [Suspect]
     Indication: HEADACHE
     Dosage: 60 MG, UNK
     Route: 030
  2. FLUOXETINE [Concomitant]
     Indication: STRESS
     Dosage: 40 MG, DAILY
  3. RELPAX [Suspect]
     Indication: STRESS
  4. RELPAX [Suspect]
     Indication: MIGRAINE
     Dosage: 20 MG, AS NEEDED
     Dates: start: 20111219

REACTIONS (4)
  - DRUG INEFFECTIVE [None]
  - FEELING ABNORMAL [None]
  - HEADACHE [None]
  - DRUG ADMINISTRATION ERROR [None]
